FAERS Safety Report 23147531 (Version 1)
Quarter: 2023Q4

REPORT INFORMATION
  Report Type: Spontaneous
  Country: BE (occurrence: BE)
  Receive Date: 20231106
  Receipt Date: 20231106
  Transmission Date: 20240110
  Serious: Yes (Other)
  Sender: FDA-Public Use
  Company Number: None

PATIENT
  Age: 68 Year
  Sex: Female

DRUGS (3)
  1. LACOSAMIDE [Interacting]
     Active Substance: LACOSAMIDE
     Indication: Product used for unknown indication
     Dosage: UNK
     Route: 048
  2. LACOSAMIDE [Interacting]
     Active Substance: LACOSAMIDE
     Dosage: UNK
     Route: 048
  3. CENOBAMATE [Suspect]
     Active Substance: CENOBAMATE
     Indication: Product used for unknown indication
     Dosage: UNK
     Route: 048

REACTIONS (4)
  - Upper limb fracture [Unknown]
  - Drug interaction [Unknown]
  - Fall [Unknown]
  - Dizziness [Unknown]
